FAERS Safety Report 23163789 (Version 2)
Quarter: 2024Q1

REPORT INFORMATION
  Report Type: Spontaneous
  Country: JP (occurrence: JP)
  Receive Date: 20231109
  Receipt Date: 20240226
  Transmission Date: 20240410
  Serious: Yes (Hospitalization)
  Sender: FDA-Public Use
  Company Number: JP-EXELIXIS-CABO-23070251

PATIENT
  Age: 9 Decade
  Sex: Male

DRUGS (2)
  1. CABOMETYX [Suspect]
     Active Substance: CABOZANTINIB S-MALATE
     Indication: Metastatic renal cell carcinoma
     Dosage: 40 MG
     Dates: start: 20230803, end: 20230831
  2. OPDIVO [Suspect]
     Active Substance: NIVOLUMAB
     Indication: Metastatic renal cell carcinoma
     Dosage: 240 MG
     Route: 041
     Dates: start: 20230803, end: 20230817

REACTIONS (1)
  - Myositis [Recovered/Resolved with Sequelae]

NARRATIVE: CASE EVENT DATE: 20230907
